FAERS Safety Report 15252069 (Version 1)
Quarter: 2018Q3

REPORT INFORMATION
  Report Type: Report from Study
  Country: None (occurrence: ZA)
  Receive Date: 20180807
  Receipt Date: 20180807
  Transmission Date: 20181010
  Serious: Yes (Death, Hospitalization)
  Sender: FDA-Public Use
  Company Number: ZA-ABBVIE-18P-143-2358051-00

PATIENT
  Age: 82 Year
  Sex: Female
  Weight: 72 kg

DRUGS (52)
  1. EPILIM [Concomitant]
     Active Substance: VALPROATE SODIUM
     Indication: GENERALISED TONIC-CLONIC SEIZURE
     Route: 048
     Dates: start: 2016
  2. MOVICOL [Concomitant]
     Active Substance: POLYETHYLENE GLYCOL 3350\POTASSIUM CHLORIDE\SODIUM BICARBONATE\SODIUM CHLORIDE
     Indication: CONSTIPATION
     Route: 048
     Dates: start: 20180404
  3. AMIODARONE [Concomitant]
     Active Substance: AMIODARONE
     Indication: PROPHYLAXIS
     Route: 048
     Dates: start: 20180413
  4. VENETOCLAX. [Suspect]
     Active Substance: VENETOCLAX
     Indication: ACUTE MYELOID LEUKAEMIA
     Route: 048
     Dates: start: 20180410, end: 20180410
  5. AZACITIDINE. [Suspect]
     Active Substance: AZACITIDINE
     Indication: ACUTE MYELOID LEUKAEMIA
     Dosage: DAYS 1?7 OF EACH 28?DAY CYCLE
     Route: 058
     Dates: start: 20180410, end: 20180416
  6. MAXOLON [Concomitant]
     Active Substance: METOCLOPRAMIDE HYDROCHLORIDE
     Indication: PROPHYLAXIS OF NAUSEA AND VOMITING
     Route: 042
     Dates: start: 20180327
  7. PURBAC [Concomitant]
     Active Substance: SULFAMETHOXAZOLE\TRIMETHOPRIM
     Indication: INFECTION PROPHYLAXIS
     Route: 048
     Dates: start: 20180328
  8. DORMONOCT [Concomitant]
     Active Substance: LOPRAZOLAM
     Indication: INSOMNIA
     Route: 048
     Dates: start: 2017
  9. OMEZ [Concomitant]
     Active Substance: OMEPRAZOLE
     Indication: ANTACID THERAPY
     Route: 048
     Dates: start: 2017
  10. PIASCLEDINE [Concomitant]
     Active Substance: AVOCADO OIL\SOYBEAN OIL
     Indication: KNEE ARTHROPLASTY
     Route: 048
     Dates: start: 2013
  11. LACSON [Concomitant]
     Indication: CONSTIPATION
     Route: 048
     Dates: start: 20180404
  12. GASTROPECT [Concomitant]
     Indication: DIARRHOEA
     Route: 048
     Dates: start: 20180413
  13. THIAMINE [Concomitant]
     Active Substance: THIAMINE
     Indication: PROPHYLAXIS
  14. DS 24 MULTI VITAMIN [Concomitant]
     Indication: VITAMIN SUPPLEMENTATION
     Route: 048
     Dates: start: 20180327
  15. NOXAFIL [Concomitant]
     Active Substance: POSACONAZOLE
     Indication: ANTIFUNGAL PROPHYLAXIS
     Route: 048
     Dates: start: 20180404, end: 20180508
  16. FOLATE [Concomitant]
     Active Substance: FOLATE SODIUM
     Indication: PROPHYLAXIS
  17. STILPANE [Concomitant]
     Indication: OSTEOARTHRITIS
     Route: 048
     Dates: start: 20180327
  18. BACTROBAN TOPICAL CREAM [Concomitant]
     Indication: SKIN ULCER
     Dosage: 1 APPLICATION
     Route: 061
     Dates: start: 20180402
  19. ZELITREX [Concomitant]
     Active Substance: VALACYCLOVIR HYDROCHLORIDE
     Indication: INFECTION PROPHYLAXIS
     Route: 048
     Dates: start: 20180328
  20. EMEND [Concomitant]
     Active Substance: APREPITANT
     Indication: PROPHYLAXIS OF NAUSEA AND VOMITING
     Route: 048
     Dates: start: 20180413
  21. CAVILON BARRIER CREAM [Concomitant]
     Indication: PROPHYLAXIS
     Dosage: 1 APPLICATION
     Route: 061
     Dates: start: 20180330
  22. CAVILON SPRAY [Concomitant]
     Indication: PROPHYLAXIS
     Dosage: 1 SPRAY
     Route: 061
     Dates: start: 20180330
  23. ATIVAN [Concomitant]
     Active Substance: LORAZEPAM
     Indication: ANXIETY
     Route: 060
     Dates: start: 20180331
  24. EUTHYROX [Concomitant]
     Active Substance: LEVOTHYROXINE SODIUM
     Indication: HYPOTHYROIDISM
     Route: 048
     Dates: start: 197806
  25. LASIX [Concomitant]
     Active Substance: FUROSEMIDE
     Indication: TRANSFUSION
  26. ROBAXIN [Concomitant]
     Active Substance: METHOCARBAMOL
     Indication: MUSCULOSKELETAL PAIN
     Route: 048
     Dates: start: 20180420
  27. ALLOPURINOL. [Concomitant]
     Active Substance: ALLOPURINOL
     Indication: PROPHYLAXIS
     Route: 048
     Dates: start: 20180404
  28. ALPROZOLAM [Concomitant]
     Active Substance: ALPRAZOLAM
     Indication: ANXIETY
     Route: 048
     Dates: start: 20180327
  29. MERONEM [Concomitant]
     Active Substance: MEROPENEM
     Indication: PROPHYLAXIS
     Route: 042
     Dates: start: 20180410
  30. PIASCLEDINE [Concomitant]
     Active Substance: AVOCADO OIL\SOYBEAN OIL
     Indication: OSTEOARTHRITIS
  31. DITROPAN [Concomitant]
     Active Substance: OXYBUTYNIN CHLORIDE
     Indication: URINARY TRACT DISORDER
     Route: 048
     Dates: start: 20180504
  32. LASIX [Concomitant]
     Active Substance: FUROSEMIDE
     Indication: PROPHYLAXIS
     Route: 042
     Dates: start: 201804
  33. OXYBUTYNIN. [Concomitant]
     Active Substance: OXYBUTYNIN CHLORIDE
     Indication: URINARY INCONTINENCE
     Route: 048
     Dates: start: 20180413
  34. AMLOC [Concomitant]
     Indication: HYPERTENSION
     Route: 048
     Dates: start: 20180328
  35. MYCAMINE [Concomitant]
     Active Substance: MICAFUNGIN SODIUM
     Indication: INFECTION PROPHYLAXIS
     Route: 017
     Dates: start: 20180328
  36. ZYVOXID [Concomitant]
     Active Substance: LINEZOLID
     Indication: PROPHYLAXIS
     Route: 042
     Dates: start: 20180410
  37. ZITHROMAX [Concomitant]
     Active Substance: AZITHROMYCIN DIHYDRATE
     Indication: INFECTION PROPHYLAXIS
     Route: 048
     Dates: start: 20180410
  38. ESCITALOPRAM [Concomitant]
     Active Substance: ESCITALOPRAM OXALATE
     Indication: DEPRESSION
     Route: 048
     Dates: start: 2008
  39. AMIODARONE [Concomitant]
     Active Substance: AMIODARONE
     Indication: TRANSFUSION
  40. PERSIVATE CREAM [Concomitant]
     Indication: PAIN PROPHYLAXIS
     Dosage: 1 APPLICATION
     Route: 061
     Dates: start: 20180413
  41. KYTRIL [Concomitant]
     Active Substance: GRANISETRON HYDROCHLORIDE
     Indication: PROPHYLAXIS OF NAUSEA AND VOMITING
     Route: 042
     Dates: start: 20180413
  42. DAKTARIN ORAL GEL [Concomitant]
     Active Substance: MICONAZOLE
     Indication: MUCOSITIS MANAGEMENT
     Dosage: 1 APPLICATION
     Route: 002
     Dates: start: 20180413
  43. FOLATE [Concomitant]
     Active Substance: FOLATE SODIUM
     Indication: VITAMIN SUPPLEMENTATION
     Route: 048
     Dates: start: 20180413
  44. ALDACTONE [Concomitant]
     Active Substance: SPIRONOLACTONE
     Indication: PROPHYLAXIS
     Route: 048
     Dates: start: 20180413
  45. VENETOCLAX. [Suspect]
     Active Substance: VENETOCLAX
     Route: 048
     Dates: start: 20180411, end: 20180411
  46. VENETOCLAX. [Suspect]
     Active Substance: VENETOCLAX
     Route: 048
     Dates: start: 20180412, end: 20180507
  47. NORMAL SALINE SOLUTION (0.9% SODIUM CHLORIDE) [Concomitant]
     Indication: PROPHYLAXIS
     Route: 042
     Dates: start: 20180327
  48. PAROEX MOUTH WASH [Concomitant]
     Indication: ANTIFUNGAL PROPHYLAXIS
     Route: 002
     Dates: start: 20180327
  49. CEFEPIME [Concomitant]
     Active Substance: CEFEPIME HYDROCHLORIDE
     Indication: INFECTION PROPHYLAXIS
     Route: 042
     Dates: start: 20180328
  50. LEVOFLOXAXIN [Concomitant]
     Active Substance: LEVOFLOXACIN
     Indication: INFECTION PROPHYLAXIS
     Route: 048
     Dates: start: 20180419
  51. THIAMINE [Concomitant]
     Active Substance: THIAMINE
     Indication: VITAMIN SUPPLEMENTATION
     Route: 048
     Dates: start: 20180413
  52. ROBAXIN [Concomitant]
     Active Substance: METHOCARBAMOL
     Indication: MYALGIA

REACTIONS (2)
  - Pneumonia klebsiella [Fatal]
  - Pneumonia [Unknown]

NARRATIVE: CASE EVENT DATE: 20180427
